FAERS Safety Report 21600866 (Version 2)
Quarter: 2022Q4

REPORT INFORMATION
  Report Type: Spontaneous
  Country: JP (occurrence: JP)
  Receive Date: 20221116
  Receipt Date: 20221205
  Transmission Date: 20230112
  Serious: Yes (Other)
  Sender: FDA-Public Use
  Company Number: JP-CHUGAI-2022036250AA

PATIENT
  Age: 76 Year
  Sex: Male
  Weight: 60 kg

DRUGS (9)
  1. MIRCERA [Suspect]
     Active Substance: METHOXY POLYETHYLENE GLYCOL-EPOETIN BETA
     Indication: Nephrogenic anaemia
     Route: 041
     Dates: end: 2022
  2. ERYTHROPOIETIN [Suspect]
     Active Substance: ERYTHROPOIETIN
     Indication: Nephrogenic anaemia
     Dosage: 3000 E, TIW
     Route: 010
     Dates: start: 20220104, end: 20220209
  3. ERYTHROPOIETIN [Suspect]
     Active Substance: ERYTHROPOIETIN
     Dosage: 4500 E, TIW
     Route: 010
     Dates: start: 20220209, end: 20220304
  4. ERYTHROPOIETIN [Suspect]
     Active Substance: ERYTHROPOIETIN
     Dosage: 3000 E, TIW
     Route: 010
     Dates: start: 20220314, end: 20220417
  5. ERYTHROPOIETIN [Suspect]
     Active Substance: ERYTHROPOIETIN
     Dosage: 1500 E, TIW
     Route: 010
     Dates: start: 20220429, end: 20220502
  6. ERYTHROPOIETIN [Suspect]
     Active Substance: ERYTHROPOIETIN
     Dosage: 1500 E BIW+3000E ONCE/WEEK
     Route: 010
     Dates: start: 20220504
  7. ERYTHROPOIETIN [Suspect]
     Active Substance: ERYTHROPOIETIN
     Dosage: 3000 DOSAGE FORM, TIW
     Route: 010
     Dates: start: 20220805
  8. ERYTHROPOIETIN [Suspect]
     Active Substance: ERYTHROPOIETIN
     Dosage: 4500 E, TIW
     Route: 010
     Dates: start: 20220815
  9. ERYTHROPOIETIN [Suspect]
     Active Substance: ERYTHROPOIETIN
     Dosage: 6000 E, TIW
     Route: 010
     Dates: start: 20220829, end: 20220919

REACTIONS (7)
  - Aplasia pure red cell [Recovering/Resolving]
  - Platelet count decreased [Not Recovered/Not Resolved]
  - Refractory cytopenia with unilineage dysplasia [Not Recovered/Not Resolved]
  - Atrial fibrillation [Not Recovered/Not Resolved]
  - Cardiac failure chronic [Not Recovered/Not Resolved]
  - Pleural effusion [Unknown]
  - Off label use [Unknown]

NARRATIVE: CASE EVENT DATE: 20220101
